FAERS Safety Report 18234559 (Version 1)
Quarter: 2020Q3

REPORT INFORMATION
  Report Type: Spontaneous
  Country: CA (occurrence: CA)
  Receive Date: 20200904
  Receipt Date: 20200904
  Transmission Date: 20201103
  Serious: Yes (Hospitalization)
  Sender: FDA-Public Use
  Company Number: CA-TEVA-2020-CA-1822361

PATIENT
  Age: 57 Year
  Sex: Female
  Weight: 50 kg

DRUGS (10)
  1. NAPROXEN. [Concomitant]
     Active Substance: NAPROXEN
  2. LYRICA [Concomitant]
     Active Substance: PREGABALIN
  3. SYNTHROID [Concomitant]
     Active Substance: LEVOTHYROXINE SODIUM
  4. TYLENOL ARTHRITIS PAIN [Concomitant]
     Active Substance: ACETAMINOPHEN
  5. LOPERAMIDE [Concomitant]
     Active Substance: LOPERAMIDE
  6. DILAUDID [Concomitant]
     Active Substance: HYDROMORPHONE HYDROCHLORIDE
  7. SENOKOT [Concomitant]
     Active Substance: SENNOSIDES
  8. HYDROMORPH CONTIN [Concomitant]
     Active Substance: HYDROMORPHONE
  9. PREDNISONE. [Concomitant]
     Active Substance: PREDNISONE
  10. DOCETAXEL INJECTION USP [Suspect]
     Active Substance: DOCETAXEL
     Indication: LUNG NEOPLASM
     Route: 042

REACTIONS (3)
  - Gastrointestinal pathogen panel [Recovered/Resolved]
  - Diarrhoea [Recovered/Resolved]
  - Bacterial test negative [Recovered/Resolved]
